FAERS Safety Report 12896476 (Version 2)
Quarter: 2017Q4

REPORT INFORMATION
  Report Type: Spontaneous
  Country: US (occurrence: US)
  Receive Date: 20161031
  Receipt Date: 20171030
  Transmission Date: 20180320
  Serious: No
  Sender: FDA-Public Use
  Company Number: US-TEVA-690092USA

PATIENT
  Sex: Female

DRUGS (1)
  1. GUANFACINE. [Suspect]
     Active Substance: GUANFACINE
     Indication: ATTENTION DEFICIT/HYPERACTIVITY DISORDER
     Route: 065
     Dates: start: 20160712, end: 20160803

REACTIONS (5)
  - Disturbance in attention [Unknown]
  - Product substitution issue [Unknown]
  - Psychomotor hyperactivity [Unknown]
  - Impulsive behaviour [Unknown]
  - Disturbance in attention [Recovered/Resolved]
